FAERS Safety Report 5039032-1 (Version None)
Quarter: 2006Q2

REPORT INFORMATION
  Report Type: 
  Country: None (occurrence: None)
  Receive Date: 20060629
  Receipt Date: 20030129
  Transmission Date: 20061013
  Serious: Yes (Death)
  Sender: FDA-Public Use
  Company Number: GB-AMGEN-US184225

PATIENT
  Age: 59 Year
  Sex: Female

DRUGS (12)
  1. ENBREL [Suspect]
     Indication: RHEUMATOID ARTHRITIS
     Dates: start: 20010101, end: 20021001
  2. METHOTREXATE [Concomitant]
     Dates: start: 20010101, end: 20010301
  3. PREMIQUE [Concomitant]
  4. RANITIDINE [Concomitant]
  5. PARACETAMOL [Concomitant]
  6. FLUOXETINE [Concomitant]
  7. ACETYLSALICYLIC ACID SRT [Concomitant]
  8. FOLIC ACID [Concomitant]
  9. VITAMIN B-12 [Concomitant]
  10. HYPROMELLOSE [Concomitant]
  11. AMOXICILLIN [Concomitant]
  12. CEPHALEXIN [Concomitant]

REACTIONS (1)
  - PNEUMONITIS [None]
